FAERS Safety Report 14454028 (Version 2)
Quarter: 2018Q1

REPORT INFORMATION
  Report Type: Spontaneous
  Country: JP (occurrence: JP)
  Receive Date: 20180129
  Receipt Date: 20180321
  Transmission Date: 20180509
  Serious: Yes (Hospitalization)
  Sender: FDA-Public Use
  Company Number: JP-BAYER-2018-017827

PATIENT
  Age: 86 Year
  Sex: Male

DRUGS (1)
  1. AVELOX [Suspect]
     Active Substance: MOXIFLOXACIN HYDROCHLORIDE
     Indication: PLEURISY
     Dosage: 400 MG, QD
     Route: 048
     Dates: start: 20180120, end: 20180122

REACTIONS (3)
  - Interstitial lung disease [Recovering/Resolving]
  - Chest X-ray abnormal [Recovering/Resolving]
  - Oxygen saturation decreased [None]

NARRATIVE: CASE EVENT DATE: 20180121
